FAERS Safety Report 19508607 (Version 2)
Quarter: 2021Q3

REPORT INFORMATION
  Report Type: Spontaneous
  Country: US (occurrence: US)
  Receive Date: 20210708
  Receipt Date: 20210902
  Transmission Date: 20211014
  Serious: Yes (Life-Threatening, Hospitalization)
  Sender: FDA-Public Use
  Company Number: US-TEVA-2021-US-1928806

PATIENT
  Age: 87 Year
  Sex: Female
  Weight: 84 kg

DRUGS (11)
  1. IMMUNOGLOBULIN (IMMUNOGLOBULIN NOS) [Suspect]
     Active Substance: IMMUNE GLOBULIN NOS
     Indication: COAGULOPATHY
     Dosage: 25 GRAM DAILY; FOR 5 DAYS
     Route: 042
  2. IMMUNOGLOBULIN (IMMUNOGLOBULIN NOS) [Suspect]
     Active Substance: IMMUNE GLOBULIN NOS
     Dosage: 1 G/KG, FOR 2 DAYS
     Route: 042
  3. LEVOFLOXACIN. [Suspect]
     Active Substance: LEVOFLOXACIN
     Indication: PNEUMONIA
     Route: 042
  4. TAZOBACTUM [Suspect]
     Active Substance: TAZOBACTAM
     Indication: PNEUMONIA
     Route: 042
  5. PREDNISONE. [Suspect]
     Active Substance: PREDNISONE
     Indication: COAGULOPATHY
     Dosage: 1 MG/KG DAILY;
     Route: 048
  6. DEXAMETHASONE. [Suspect]
     Active Substance: DEXAMETHASONE
     Indication: COAGULOPATHY
     Dosage: FOR 7 DAYS
     Route: 042
  7. FRESH FROZEN PLASMA [Concomitant]
     Active Substance: HUMAN PLASMA
     Indication: COAGULOPATHY
     Dosage: 3 UNITS
     Route: 065
  8. PIPERACILLIN. [Suspect]
     Active Substance: PIPERACILLIN SODIUM
     Indication: PNEUMONIA
     Route: 042
  9. VITAMIN K [Suspect]
     Active Substance: PHYTONADIONE
     Indication: COAGULOPATHY
     Dosage: 10 MILLIGRAM DAILY; FOR 3 DAYS
     Route: 042
  10. OCTREOTIDE. [Suspect]
     Active Substance: OCTREOTIDE
     Indication: COAGULOPATHY
     Route: 065
  11. PANTOPRAZOLE [Concomitant]
     Active Substance: PANTOPRAZOLE
     Indication: EVIDENCE BASED TREATMENT
     Route: 042

REACTIONS (5)
  - Anaemia [Recovering/Resolving]
  - Factor V inhibition [Recovering/Resolving]
  - Haematoma muscle [Unknown]
  - Treatment failure [Unknown]
  - Retroperitoneal haematoma [Unknown]
